FAERS Safety Report 10268473 (Version 4)
Quarter: 2014Q3

REPORT INFORMATION
  Report Type: Spontaneous
  Country: US (occurrence: None)
  Receive Date: 20140625
  Receipt Date: 20140922
  Transmission Date: 20150326
  Serious: Yes (Death)
  Sender: FDA-Public Use
  Company Number: FK201402462

PATIENT
  Age: 37 Year
  Sex: Female
  Weight: 59.1 kg

DRUGS (10)
  1. ZOFRAN (ONDANSETRON) [Concomitant]
  2. ATIVAN [Concomitant]
     Active Substance: LORAZEPAM
  3. CISPLATIN. [Suspect]
     Active Substance: CISPLATIN
     Indication: BREAST CANCER
     Dosage: 103.8 MG, 1 IN 3 WK, INTRAVENOUS (NOT OTHER SPECIFIED)?
     Route: 042
     Dates: start: 20140408, end: 20140505
  4. NORMAL SALINE (SODIUM CHLORIDE) (SODIUM CHLORIDE) [Concomitant]
  5. ZOLOFT [Concomitant]
     Active Substance: SERTRALINE HYDROCHLORIDE
  6. INVESTIGATIONAL DRUG [Suspect]
     Active Substance: INVESTIGATIONAL PRODUCT
     Indication: BREAST CANCER
     Dosage: 130 MG, WK, INTRAVENOUS (NOT OTHER SPECIFIED)?
     Route: 042
     Dates: start: 20140401, end: 20140505
  7. OXYCODONE (OXYCODONE) [Concomitant]
     Active Substance: OXYCODONE
  8. SANCUSO PATCH (GRANISETRON HYDROCHLORIDE) [Concomitant]
  9. OXYCONTIN (OXYCONDONE HYDROCHLORIDE) [Concomitant]
  10. ROBITUSSIN A (CODEINE PHOS.W/GUAIFENESIN/PHENIRAMINE MAL.) [Concomitant]
     Indication: PROPHYLAXIS
     Dates: start: 20140408, end: 20140505

REACTIONS (10)
  - Dyspnoea [None]
  - Musculoskeletal chest pain [None]
  - Cough [None]
  - Tachypnoea [None]
  - Disease progression [None]
  - Nausea [None]
  - Vertigo [None]
  - Hypoxia [None]
  - Drug hypersensitivity [None]
  - Condition aggravated [None]

NARRATIVE: CASE EVENT DATE: 20140601
